FAERS Safety Report 8798813 (Version 2)
Quarter: 2012Q4

REPORT INFORMATION
  Report Type: Report from Study
  Country: JP (occurrence: JP)
  Receive Date: 20120920
  Receipt Date: 20121022
  Transmission Date: 20130627
  Serious: Yes (Hospitalization, Other)
  Sender: FDA-Public Use
  Company Number: JP-VERTEX PHARMACEUTICAL INC.-AE-2012-006220

PATIENT
  Age: 67 Year
  Sex: Female

DRUGS (14)
  1. VX-950 [Suspect]
     Indication: HEPATITIS C
     Dosage: 2250 mg, qd
     Route: 048
     Dates: start: 20120308, end: 20120403
  2. VX-950 [Suspect]
     Dosage: 1500 mg, qd
     Route: 048
     Dates: start: 20120404, end: 20120424
  3. VX-950 [Suspect]
     Dosage: 1000 mg, qd
     Route: 048
     Dates: start: 20120425, end: 20120509
  4. REBETOL [Suspect]
     Indication: HEPATITIS C
     Dosage: 800 mg, qd
     Route: 048
     Dates: start: 20120308, end: 20120327
  5. REBETOL [Suspect]
     Dosage: 600 mg, qd
     Route: 048
     Dates: start: 20120328, end: 20120403
  6. REBETOL [Suspect]
     Dosage: 400 mg, qd
     Route: 048
     Dates: start: 20120404, end: 20120410
  7. REBETOL [Suspect]
     Dosage: 200 mg, qd
     Route: 048
     Dates: start: 20120411, end: 20120521
  8. PEGINTERFERON ALFA-2B [Suspect]
     Indication: HEPATITIS C
     Dosage: 1.5 ?g/kg, qw
     Route: 058
     Dates: start: 20120308, end: 20120501
  9. PEGINTERFERON ALFA-2B [Suspect]
     Dosage: 0.9 ?g/kg, qw
     Route: 058
     Dates: start: 20120502
  10. MAGMITT [Concomitant]
     Dosage: 1500 mg, qd
     Route: 048
     Dates: start: 20120315
  11. GASTROM [Concomitant]
     Dosage: 3 g, qd
     Route: 048
     Dates: start: 20120321
  12. ZYLORIC [Concomitant]
     Dosage: 100 mg, qd
     Route: 048
     Dates: start: 20120404, end: 20120515
  13. MAIBASTAN [Concomitant]
     Dosage: 10 mg, qd
     Route: 048
  14. VOLTAREN                           /00372302/ [Concomitant]
     Dosage: 25 mg, prn
     Route: 048
     Dates: start: 20120308

REACTIONS (3)
  - Pyelonephritis [Recovered/Resolved]
  - Loss of consciousness [Recovered/Resolved]
  - Anaemia [Recovered/Resolved]
